FAERS Safety Report 15603818 (Version 3)
Quarter: 2019Q1

REPORT INFORMATION
  Report Type: Spontaneous
  Country: IT (occurrence: IT)
  Receive Date: 20181109
  Receipt Date: 20190128
  Transmission Date: 20190417
  Serious: Yes (Other)
  Sender: FDA-Public Use
  Company Number: IT-MYLANLABS-2018M1084716

PATIENT
  Age: 50 Year
  Sex: Male

DRUGS (1)
  1. LEVOFLOXACIN. [Suspect]
     Active Substance: LEVOFLOXACIN
     Indication: PROSTATITIS
     Dosage: 1 DF, TOTAL
     Route: 048
     Dates: start: 20180603, end: 20180603

REACTIONS (5)
  - Drug hypersensitivity [Recovering/Resolving]
  - Urticaria [Recovering/Resolving]
  - Eyelid oedema [Recovering/Resolving]
  - Tremor [Recovering/Resolving]
  - Obstruction [Recovering/Resolving]

NARRATIVE: CASE EVENT DATE: 20180603
